FAERS Safety Report 5722056-6 (Version None)
Quarter: 2008Q2

REPORT INFORMATION
  Report Type: 
  Country: None (occurrence: None)
  Receive Date: 20080429
  Receipt Date: 20080418
  Transmission Date: 20081010
  Serious: No
  Sender: FDA-Public Use
  Company Number: US-ELI_LILLY_AND_COMPANY-US200801003290

PATIENT
  Age: 52 Year
  Sex: Male

DRUGS (8)
  1. BYETTA [Suspect]
     Dosage: 5 UG, UNKNOWN
     Route: 058
     Dates: start: 20071129, end: 20071228
  2. BYETTA [Suspect]
     Dosage: 10 UG, UNKNOWN
     Route: 058
     Dates: start: 20071228, end: 20080110
  3. LISINOPRIL [Concomitant]
  4. FENOFIBRATE [Concomitant]
  5. NIASPAN [Concomitant]
  6. ZOCOR [Concomitant]
  7. VIAGRA [Concomitant]
  8. INSULIN [Concomitant]

REACTIONS (2)
  - CHEST PAIN [None]
  - LIPASE INCREASED [None]
